FAERS Safety Report 9681126 (Version 3)
Quarter: 2014Q1

REPORT INFORMATION
  Report Type: Spontaneous
  Country: FR (occurrence: FR)
  Receive Date: 20131111
  Receipt Date: 20140130
  Transmission Date: 20141002
  Serious: Yes (Death)
  Sender: FDA-Public Use
  Company Number: FR-B.I. PHARMACEUTICALS,INC./RIDGEFIELD-2013-FF-02682FF

PATIENT
  Age: 78 Year
  Sex: Female

DRUGS (6)
  1. PRADAXA [Suspect]
     Indication: ATRIAL FIBRILLATION
     Dosage: 220 MG
     Route: 048
     Dates: start: 20130523
  2. BISOCE [Concomitant]
     Indication: ATRIAL FIBRILLATION
     Dosage: 2.5 MG
     Route: 048
     Dates: start: 20130506
  3. BISOCE [Concomitant]
     Indication: ARRHYTHMIA
  4. ENALAPRIL [Concomitant]
     Indication: HYPERTENSION
     Dosage: 5 MG
     Route: 048
     Dates: start: 20130506
  5. CORTANCYL [Concomitant]
     Indication: HYPERTHYROIDISM
     Dosage: 20 MG
     Route: 048
     Dates: start: 20130506
  6. NEOMERCAZOLE [Concomitant]
     Indication: HYPERTHYROIDISM
     Dosage: 60 MG
     Route: 048
     Dates: start: 20130506

REACTIONS (1)
  - Ischaemic stroke [Fatal]
